FAERS Safety Report 6969966-X (Version None)
Quarter: 2010Q3

REPORT INFORMATION
  Report Type: 
  Country: None (occurrence: None)
  Receive Date: 20100908
  Receipt Date: 20100901
  Transmission Date: 20110219
  Serious: Yes (Death)
  Sender: FDA-Public Use
  Company Number: PHHY2010US57926

PATIENT
  Age: 76 Year
  Sex: Male

DRUGS (4)
  1. CYCLOSPORINE [Suspect]
     Indication: REFRACTORY CYTOPENIA WITH MULTILINEAGE DYSPLASIA
     Dosage: UNK
  2. CYCLOSPORINE [Suspect]
     Indication: MYELODYSPLASTIC SYNDROME
  3. STEROIDS NOS [Suspect]
     Indication: REFRACTORY CYTOPENIA WITH MULTILINEAGE DYSPLASIA
  4. STEROIDS NOS [Suspect]
     Indication: MYELODYSPLASTIC SYNDROME

REACTIONS (2)
  - DISEASE PROGRESSION [None]
  - REFRACTORY ANAEMIA WITH AN EXCESS OF BLASTS [None]
